FAERS Safety Report 20375362 (Version 1)
Quarter: 2022Q1

REPORT INFORMATION
  Report Type: Spontaneous
  Country: US (occurrence: None)
  Receive Date: 20220124
  Receipt Date: 20220124
  Transmission Date: 20220423
  Serious: Yes (unspecified)
  Sender: FDA-Public Use
  Company Number: None

PATIENT
  Age: 33 Year
  Sex: Female
  Weight: 104.33 kg

DRUGS (1)
  1. NEXPLANON [Suspect]
     Active Substance: ETONOGESTREL

REACTIONS (9)
  - Weight increased [None]
  - Back pain [None]
  - Arthralgia [None]
  - Axillary pain [None]
  - Lymph node pain [None]
  - Amenorrhoea [None]
  - Morning sickness [None]
  - Adnexa uteri pain [None]
  - Scar [None]

NARRATIVE: CASE EVENT DATE: 20210111
